FAERS Safety Report 24887268 (Version 1)
Quarter: 2025Q1

REPORT INFORMATION
  Report Type: Report from Study
  Country: US (occurrence: US)
  Receive Date: 20250127
  Receipt Date: 20250127
  Transmission Date: 20250409
  Serious: Yes (Hospitalization)
  Sender: ABBVIE
  Company Number: US-ABBVIE-6071368

PATIENT
  Age: 53 Year
  Sex: Male
  Weight: 92.986 kg

DRUGS (3)
  1. SKYRIZI [Suspect]
     Active Substance: RISANKIZUMAB-RZAA
     Indication: Psoriatic arthropathy
     Dosage: LAST ADMIN DATE: 2024
     Route: 058
     Dates: start: 20230630
  2. SKYRIZI [Suspect]
     Active Substance: RISANKIZUMAB-RZAA
     Indication: Psoriasis
     Dosage: DRUG RESTARTED,?FORM STRENGTH: 150 MG
     Route: 058
  3. PRAZOSIN [Concomitant]
     Active Substance: PRAZOSIN
     Indication: Hypertension

REACTIONS (3)
  - Major depression [Recovering/Resolving]
  - Psoriasis [Recovering/Resolving]
  - Psoriatic arthropathy [Unknown]

NARRATIVE: CASE EVENT DATE: 20240101
